FAERS Safety Report 19990382 (Version 1)
Quarter: 2021Q4

REPORT INFORMATION
  Report Type: Spontaneous
  Country: US (occurrence: US)
  Receive Date: 20211021
  Receipt Date: 20211021
  Transmission Date: 20220303
  Serious: No
  Sender: FDA-Public Use
  Company Number: None

PATIENT
  Age: 54 Year
  Sex: Female
  Weight: 107.14 kg

DRUGS (1)
  1. CYTOMEL [Suspect]
     Active Substance: LIOTHYRONINE SODIUM
     Indication: Hypothyroidism
     Route: 048
     Dates: start: 20180420

REACTIONS (4)
  - Urticaria [None]
  - Rash [None]
  - Swelling [None]
  - Product substitution issue [None]

NARRATIVE: CASE EVENT DATE: 20210901
